FAERS Safety Report 26108695 (Version 1)
Quarter: 2025Q4

REPORT INFORMATION
  Report Type: Spontaneous
  Country: US (occurrence: US)
  Receive Date: 20251201
  Receipt Date: 20251201
  Transmission Date: 20260118
  Serious: No
  Sender: BRISTOL-MYERS SQUIBB COMPANY
  Company Number: US-BRISTOL-MYERS SQUIBB COMPANY-2025-161719

PATIENT
  Age: 74 Year
  Sex: Female

DRUGS (3)
  1. CAMZYOS [Suspect]
     Active Substance: MAVACAMTEN
     Indication: Hypertrophic cardiomyopathy
     Route: 048
  2. CLONIDINE [Suspect]
     Active Substance: CLONIDINE
     Indication: Product used for unknown indication
  3. METOPROLOL [Suspect]
     Active Substance: METOPROLOL
     Indication: Product used for unknown indication

REACTIONS (4)
  - Dizziness [Recovered/Resolved]
  - Fatigue [Recovered/Resolved]
  - Disturbance in attention [Recovered/Resolved]
  - Malaise [Recovered/Resolved]

NARRATIVE: CASE EVENT DATE: 20251124
